FAERS Safety Report 7685984-0 (Version None)
Quarter: 2011Q3

REPORT INFORMATION
  Report Type: 
  Country: None (occurrence: None)
  Receive Date: 20110816
  Receipt Date: 20110804
  Transmission Date: 20111222
  Serious: Yes (Other)
  Sender: FDA-Public Use
  Company Number: PHFR2011GB02794

PATIENT
  Sex: Female

DRUGS (13)
  1. CLOZAPINE [Suspect]
     Indication: SCHIZOPHRENIA
     Dosage: 200 MG/DAY
     Route: 048
     Dates: start: 20110401, end: 20110424
  2. ACETAMINOPHEN [Concomitant]
     Dosage: UNK DF, PRN
  3. GLICLAZIDE [Concomitant]
     Dosage: 160 MG, BID
     Route: 048
  4. PROCYCLIDINE HYDROCHLORIDE 2MG TAB [Concomitant]
     Dosage: 5 MG/DAY
  5. ASPIRIN [Concomitant]
     Dosage: 75 MG/DAY
  6. INSULIN [Concomitant]
  7. SIMAVASTATIN [Concomitant]
     Dosage: 40 MG/DAY
     Route: 048
  8. TRAMADOL HCL [Concomitant]
     Dosage: 50 MG, QID
  9. RAMIPRIL [Concomitant]
     Dosage: 8 MG
  10. ARIPIPRAZOLE [Concomitant]
  11. METFORMIN HCL [Concomitant]
     Dosage: 2 G/DAY
     Route: 048
  12. FUROSEMIDE [Concomitant]
     Dosage: 80 MG,
  13. CITALOPRAM HYDROBROMIDE [Concomitant]
     Dosage: 20 MG

REACTIONS (4)
  - HEPATIC STEATOSIS [None]
  - BLOOD ALKALINE PHOSPHATASE INCREASED [None]
  - LIVER FUNCTION TEST ABNORMAL [None]
  - ALANINE AMINOTRANSFERASE INCREASED [None]
